FAERS Safety Report 4095463 (Version 4)
Quarter: 2015Q1

REPORT INFORMATION
  Report Type: Spontaneous
  Country: JP (occurrence: JP)
  Receive Date: 20040226
  Receipt Date: 20150123
  Transmission Date: 20150721
  Serious: Yes (Death)
  Sender: FDA-Public Use
  Company Number: PHBS2004JP02422

PATIENT
  Age: 65 Year
  Sex: Female

DRUGS (7)
  1. FOY [Concomitant]
     Active Substance: GABEXATE MESYLATE
     Indication: PRODUCT USED FOR UNKNOWN INDICATION
     Dosage: 1500 MG, UNK
     Route: 042
     Dates: start: 20040218
  2. LASIX [Concomitant]
     Active Substance: FUROSEMIDE
     Indication: ACUTE KIDNEY INJURY
     Dosage: 100 MG, UNK
     Route: 042
     Dates: start: 20040205, end: 20040218
  3. GLIVEC [Suspect]
     Active Substance: IMATINIB MESYLATE
     Dosage: 600 MG, QD
     Route: 048
     Dates: start: 20040209, end: 20040218
  4. GLIVEC [Suspect]
     Active Substance: IMATINIB MESYLATE
     Dosage: 400 MG, QD
     Route: 048
     Dates: start: 20040130, end: 20040208
  5. CYLOCIDE [Suspect]
     Active Substance: CYTARABINE
     Indication: BLAST CELL CRISIS
     Dosage: 20 MG, QD
     Route: 058
     Dates: start: 20040213, end: 20040218
  6. CYLOCIDE [Suspect]
     Active Substance: CYTARABINE
     Indication: CHRONIC MYELOID LEUKAEMIA
  7. GLIVEC [Suspect]
     Active Substance: IMATINIB MESYLATE
     Indication: BLAST CRISIS IN MYELOGENOUS LEUKAEMIA
     Dosage: 300 MG, QD
     Route: 048
     Dates: start: 20031015, end: 20040129

REACTIONS (11)
  - Disseminated intravascular coagulation [Fatal]
  - Blood creatinine increased [Recovering/Resolving]
  - Thrombocytopenia [Fatal]
  - Coma [Fatal]
  - Blast cell crisis [Fatal]
  - Blood urea increased [Recovering/Resolving]
  - Oxygen saturation decreased [Fatal]
  - Blood lactate dehydrogenase increased [Not Recovered/Not Resolved]
  - Subdural haemorrhage [Fatal]
  - Malignant neoplasm progression [Fatal]
  - Cardio-respiratory arrest [Fatal]

NARRATIVE: CASE EVENT DATE: 20040204
